FAERS Safety Report 16061742 (Version 1)
Quarter: 2019Q1

REPORT INFORMATION
  Report Type: Report from Study
  Country: FR (occurrence: FR)
  Receive Date: 20190312
  Receipt Date: 20190312
  Transmission Date: 20190418
  Serious: Yes (Hospitalization)
  Sender: FDA-Public Use
  Company Number: FR-SA-2019SA065871

PATIENT
  Age: 65 Year
  Sex: Male

DRUGS (3)
  1. DOCETAXEL. [Suspect]
     Active Substance: DOCETAXEL
     Indication: PROSTATE CANCER METASTATIC
     Dosage: 96 MG, QCY
     Route: 042
     Dates: start: 20170531, end: 20170531
  2. DOCETAXEL. [Suspect]
     Active Substance: DOCETAXEL
     Dosage: 96 MG, QCY
     Route: 042
     Dates: start: 20170712, end: 20170712
  3. GOSERELIN ACETATE [Suspect]
     Active Substance: GOSERELIN ACETATE
     Dosage: 10.8 MG
     Dates: start: 20170429, end: 2017

REACTIONS (1)
  - Haematuria [Recovered/Resolved]

NARRATIVE: CASE EVENT DATE: 20170722
